FAERS Safety Report 15378335 (Version 2)
Quarter: 2018Q3

REPORT INFORMATION
  Report Type: Report from Study
  Country: BE (occurrence: BE)
  Receive Date: 20180913
  Receipt Date: 20180920
  Transmission Date: 20181010
  Serious: Yes (Hospitalization, Other)
  Sender: FDA-Public Use
  Company Number: BE-BAXTER-2018BAX023279

PATIENT
  Age: 48 Year
  Sex: Male
  Weight: 92 kg

DRUGS (32)
  1. ENDOXAN 1000 MG ? POUDRE POUR SOLUTION INJECTABLE [Suspect]
     Active Substance: CYCLOPHOSPHAMIDE
     Indication: PRODUCT USED FOR UNKNOWN INDICATION
     Dosage: UNK, REGIMEN 2
     Route: 065
     Dates: start: 20160519, end: 20160519
  2. DEXAMETHASONE. [Suspect]
     Active Substance: DEXAMETHASONE
     Indication: PRODUCT USED FOR UNKNOWN INDICATION
     Dosage: UNK, REGIMEN 2
     Route: 065
     Dates: start: 20160519, end: 20160519
  3. NEULASTA [Suspect]
     Active Substance: PEGFILGRASTIM
     Indication: PRODUCT USED FOR UNKNOWN INDICATION
     Dosage: 6 MG, 1X/DAY (6 MG/0.6 ML)
     Route: 065
     Dates: start: 20160529, end: 20161107
  4. CIALIS [Concomitant]
     Active Substance: TADALAFIL
     Indication: PRODUCT USED FOR UNKNOWN INDICATION
     Dosage: UNK
     Route: 065
     Dates: start: 20160412, end: 20161107
  5. ENDOXAN 1000 MG ? POUDRE POUR SOLUTION INJECTABLE [Suspect]
     Active Substance: CYCLOPHOSPHAMIDE
     Dosage: UNK, REGIMEN 1
     Route: 065
     Dates: start: 20160419, end: 20160419
  6. DOXORUBICIN HYDROCHLORIDE. [Suspect]
     Active Substance: DOXORUBICIN HYDROCHLORIDE
     Indication: ACUTE LYMPHOCYTIC LEUKAEMIA
     Dosage: UNK, REGIMEN 3
     Route: 065
     Dates: start: 20160609, end: 20160609
  7. ICLUSIG [Suspect]
     Active Substance: PONATINIB
     Indication: ACUTE LYMPHOCYTIC LEUKAEMIA
     Dosage: 45 MG, 1X/DAY
     Route: 048
     Dates: start: 20160426
  8. ENDOXAN 1000 MG ? POUDRE POUR SOLUTION INJECTABLE [Suspect]
     Active Substance: CYCLOPHOSPHAMIDE
     Indication: ACUTE LYMPHOCYTIC LEUKAEMIA
     Dosage: UNK, REGIMEN 3
     Route: 065
     Dates: start: 20160609, end: 20160609
  9. DEXAMETHASONE. [Suspect]
     Active Substance: DEXAMETHASONE
     Dosage: UNK, REGIMEN 1
     Route: 065
     Dates: start: 20160419, end: 20160419
  10. FOLINIC ACID [Suspect]
     Active Substance: LEUCOVORIN
     Indication: PRODUCT USED FOR UNKNOWN INDICATION
     Dosage: UNK, REGIMEN 3
     Route: 065
     Dates: start: 20160609, end: 20160609
  11. METHOTREXATE SODIUM. [Suspect]
     Active Substance: METHOTREXATE SODIUM
     Indication: ACUTE LYMPHOCYTIC LEUKAEMIA
     Dosage: UNK, REGIMEN 2
     Route: 065
     Dates: start: 20160519, end: 20160519
  12. METHOTREXATE SODIUM. [Suspect]
     Active Substance: METHOTREXATE SODIUM
     Dosage: UNK, REGIMEN 1
     Route: 065
     Dates: start: 20160419, end: 20160419
  13. DOXORUBICIN HYDROCHLORIDE. [Suspect]
     Active Substance: DOXORUBICIN HYDROCHLORIDE
     Dosage: UNK, REGIMEN 1
     Route: 065
     Dates: start: 20160419, end: 20160419
  14. METHYLPREDNISOLONE. [Suspect]
     Active Substance: METHYLPREDNISOLONE
     Indication: ACUTE LYMPHOCYTIC LEUKAEMIA
     Dosage: UNK, REGIMEN 2
     Route: 065
     Dates: start: 20160519, end: 20160519
  15. VINCRISTINE [Suspect]
     Active Substance: VINCRISTINE
     Indication: PRODUCT USED FOR UNKNOWN INDICATION
     Dosage: UNK, REGIMEN 2
     Route: 065
     Dates: start: 20160519, end: 20160519
  16. VINCRISTINE [Suspect]
     Active Substance: VINCRISTINE
     Dosage: UNK, REGIMEN 3
     Route: 065
     Dates: start: 20160609, end: 20160609
  17. FOLINIC ACID [Suspect]
     Active Substance: LEUCOVORIN
     Indication: ACUTE LYMPHOCYTIC LEUKAEMIA
     Dosage: UNK, REGIMEN 2
     Route: 065
     Dates: start: 20160519, end: 20160519
  18. CYTARABINE. [Suspect]
     Active Substance: CYTARABINE
     Indication: ACUTE LYMPHOCYTIC LEUKAEMIA
     Dosage: UNK, REGIMEN 1
     Route: 065
     Dates: start: 20160419, end: 20160419
  19. METHYLPREDNISOLONE. [Suspect]
     Active Substance: METHYLPREDNISOLONE
     Dosage: UNK, REGIMEN 1
     Route: 065
     Dates: start: 20160419, end: 20160419
  20. METHYLPREDNISOLONE. [Suspect]
     Active Substance: METHYLPREDNISOLONE
     Indication: PRODUCT USED FOR UNKNOWN INDICATION
     Dosage: UNK, REGIMEN 3
     Route: 065
     Dates: start: 20160609, end: 20160609
  21. METHOTREXATE SODIUM. [Suspect]
     Active Substance: METHOTREXATE SODIUM
     Indication: PRODUCT USED FOR UNKNOWN INDICATION
     Dosage: UNK, REGIMEN 3
     Route: 065
     Dates: start: 20160609, end: 20160609
  22. RANITIDINE. [Concomitant]
     Active Substance: RANITIDINE
     Indication: PRODUCT USED FOR UNKNOWN INDICATION
     Dosage: UNK
     Route: 065
     Dates: start: 20160412, end: 20161107
  23. PRIMPERAN [Concomitant]
     Active Substance: METOCLOPRAMIDE HYDROCHLORIDE
     Indication: PRODUCT USED FOR UNKNOWN INDICATION
     Dosage: UNK
     Route: 065
     Dates: end: 20161107
  24. DEXAMETHASONE. [Suspect]
     Active Substance: DEXAMETHASONE
     Indication: ACUTE LYMPHOCYTIC LEUKAEMIA
     Dosage: UNK, REGIMEN 3
     Route: 065
     Dates: start: 20160609, end: 20160609
  25. CYTARABINE. [Suspect]
     Active Substance: CYTARABINE
     Indication: PRODUCT USED FOR UNKNOWN INDICATION
     Dosage: UNK, REGIMEN 3
     Route: 065
     Dates: start: 20160609, end: 20160609
  26. VINCRISTINE [Suspect]
     Active Substance: VINCRISTINE
     Indication: ACUTE LYMPHOCYTIC LEUKAEMIA
     Dosage: UNK, REGIMEN 1
     Route: 065
     Dates: start: 20160419, end: 20160419
  27. ACICLOVIR [Concomitant]
     Active Substance: ACYCLOVIR
     Indication: PRODUCT USED FOR UNKNOWN INDICATION
     Dosage: UNK
     Route: 065
     Dates: end: 20161107
  28. CALCIUM CARBONATE. [Concomitant]
     Active Substance: CALCIUM CARBONATE
     Indication: PRODUCT USED FOR UNKNOWN INDICATION
     Route: 065
  29. DOXORUBICIN HYDROCHLORIDE. [Suspect]
     Active Substance: DOXORUBICIN HYDROCHLORIDE
     Indication: PRODUCT USED FOR UNKNOWN INDICATION
     Dosage: UNK, REGIMEN 2
     Route: 065
     Dates: start: 20160519, end: 20160519
  30. FOLINIC ACID [Suspect]
     Active Substance: LEUCOVORIN
     Dosage: UNK, REGIMEN 1
     Route: 065
     Dates: start: 20160419, end: 20160419
  31. CYTARABINE. [Suspect]
     Active Substance: CYTARABINE
     Dosage: UNK, REGIMEN 2
     Route: 065
     Dates: start: 20160519, end: 20160519
  32. PENTACARINAT [Concomitant]
     Active Substance: PENTAMIDINE ISETHIONATE
     Indication: PRODUCT USED FOR UNKNOWN INDICATION
     Dosage: UNK
     Route: 065
     Dates: end: 20160519

REACTIONS (3)
  - Inflammation [Recovered/Resolved]
  - Neutropenia [Recovered/Resolved]
  - Pyrexia [Recovered/Resolved]

NARRATIVE: CASE EVENT DATE: 20160614
